FAERS Safety Report 11007265 (Version 1)
Quarter: 2015Q2

REPORT INFORMATION
  Report Type: Spontaneous
  Country: DE (occurrence: DE)
  Receive Date: 20150409
  Receipt Date: 20150409
  Transmission Date: 20150821
  Serious: Yes (Other)
  Sender: FDA-Public Use
  Company Number: DE-TEVA-552323GER

PATIENT
  Age: 70 Year
  Sex: Male

DRUGS (1)
  1. AMLODIPIN-RATIOPHARM 10 MG N TABLETTEN [Suspect]
     Active Substance: AMLODIPINE BESYLATE
     Indication: HYPERTENSION
     Dosage: 20 MILLIGRAM DAILY;
     Route: 048
     Dates: start: 2013

REACTIONS (1)
  - Glaucoma [Unknown]
